FAERS Safety Report 7257302-3 (Version None)
Quarter: 2011Q1

REPORT INFORMATION
  Report Type: 
  Country: None (occurrence: None)
  Receive Date: 20110129
  Receipt Date: 20100712
  Transmission Date: 20110831
  Serious: No
  Sender: FDA-Public Use
  Company Number: US-ABBOTT-10P-163-0656402-00

PATIENT
  Age: 48 Year
  Sex: Female

DRUGS (4)
  1. FOLIC [Concomitant]
     Indication: PRODUCT USED FOR UNKNOWN INDICATION
  2. TRAMADOL HCL [Concomitant]
     Indication: PAIN
     Dosage: AS REQUIRED
  3. HUMIRA [Suspect]
     Indication: RHEUMATOID ARTHRITIS
     Dates: start: 20100616
  4. LISINOPRIL [Concomitant]
     Indication: HYPERTENSION
     Dosage: 10-12.5MG

REACTIONS (3)
  - MALAISE [None]
  - NAUSEA [None]
  - DECREASED APPETITE [None]
